FAERS Safety Report 4708794-2 (Version None)
Quarter: 2005Q3

REPORT INFORMATION
  Report Type: 
  Country: None (occurrence: None)
  Receive Date: 20050705
  Receipt Date: 20050616
  Transmission Date: 20060218
  Serious: Yes (Other)
  Sender: FDA-Public Use
  Company Number: ACO_0172_2005

PATIENT
  Age: 61 Year

DRUGS (6)
  1. ZANAFLEX [Suspect]
     Indication: MUSCLE SPASMS
     Dosage: 2 MG TID PO
     Route: 048
  2. ZANAFLEX [Suspect]
     Indication: MUSCLE SPASMS
     Dosage: 2 MG QWK PO
     Route: 048
  3. EVENING PRIMROSE [Concomitant]
  4. ASCORBIC ACID [Concomitant]
  5. IBUPRFEN [Concomitant]
  6. IMIPRAMINE [Concomitant]

REACTIONS (2)
  - LETHARGY [None]
  - MYALGIA [None]
